FAERS Safety Report 23355007 (Version 2)
Quarter: 2024Q1

REPORT INFORMATION
  Report Type: Report from Study
  Country: CO (occurrence: CO)
  Receive Date: 20240101
  Receipt Date: 20240104
  Transmission Date: 20240410
  Serious: Yes (Hospitalization, Other)
  Sender: FDA-Public Use
  Company Number: CO-ABBVIE-5566869

PATIENT
  Age: 45 Year
  Sex: Male
  Weight: 55 kg

DRUGS (1)
  1. ZEMPLAR [Suspect]
     Active Substance: PARICALCITOL
     Indication: Hyperparathyroidism secondary
     Dosage: FORM STRENGTH: 5 MICROGRAM
     Route: 065
     Dates: start: 20160831, end: 20231109

REACTIONS (5)
  - Cerebrovascular accident [Recovering/Resolving]
  - Memory impairment [Unknown]
  - Cerebral thrombosis [Recovering/Resolving]
  - Speech disorder [Unknown]
  - Reading disorder [Unknown]

NARRATIVE: CASE EVENT DATE: 20231101
